FAERS Safety Report 9311994 (Version 1)
Quarter: 2013Q2

REPORT INFORMATION
  Report Type: Spontaneous
  Country: GB (occurrence: GB)
  Receive Date: 20130528
  Receipt Date: 20130528
  Transmission Date: 20140414
  Serious: Yes (Other)
  Sender: FDA-Public Use
  Company Number: PHFR2013GB002646

PATIENT
  Age: 71 Year
  Sex: Female

DRUGS (2)
  1. CLOZARIL [Suspect]
     Indication: SCHIZOPHRENIA
     Dosage: 100 MG, OD
     Route: 048
     Dates: start: 20130220
  2. CLOZARIL [Suspect]
     Dosage: 50 UNK, UNK
     Route: 048
     Dates: end: 20130503

REACTIONS (1)
  - Incorrect dose administered [Recovered/Resolved]
